FAERS Safety Report 4396593-3 (Version None)
Quarter: 2004Q3

REPORT INFORMATION
  Report Type: 
  Country: None (occurrence: None)
  Receive Date: 20040709
  Receipt Date: 20040629
  Transmission Date: 20050211
  Serious: Yes (Hospitalization)
  Sender: FDA-Public Use
  Company Number: 2004043273

PATIENT
  Age: 44 Year
  Sex: Male

DRUGS (8)
  1. LIPITOR [Suspect]
     Indication: ILL-DEFINED DISORDER
     Dosage: 5 MG (1 IN 1 D), ORAL
     Route: 048
     Dates: start: 20040122, end: 20040412
  2. MICARDIS [Suspect]
     Indication: ILL-DEFINED DISORDER
     Dosage: 80 MG (1 IN 1 D), ORAL
     Route: 048
     Dates: start: 20040122, end: 20040412
  3. AMLODIPINE BESYLATE [Concomitant]
  4. ENALAPRIL MALEATE [Concomitant]
  5. PROBUCOL [Concomitant]
  6. FUROSEMIDE [Concomitant]
  7. CALCIUM POLYSTYRENE SULFONATE [Concomitant]
  8. DOXAZOSIN MESYLATE [Concomitant]

REACTIONS (3)
  - DIABETIC NEPHROPATHY [None]
  - DIALYSIS [None]
  - RENAL FAILURE [None]
